FAERS Safety Report 21117836 (Version 8)
Quarter: 2023Q2

REPORT INFORMATION
  Report Type: Report from Study
  Country: US (occurrence: US)
  Receive Date: 20220722
  Receipt Date: 20230417
  Transmission Date: 20230722
  Serious: No
  Sender: FDA-Public Use
  Company Number: US-NOVARTISTESTPH-NVSC2022US165774

PATIENT
  Sex: Female

DRUGS (3)
  1. COSENTYX [Suspect]
     Active Substance: SECUKINUMAB
     Indication: Psoriasis
     Dosage: 300 MG, QW ( 0, 1, 2, 3, 4)
     Route: 058
  2. COSENTYX [Suspect]
     Active Substance: SECUKINUMAB
     Dosage: 300 MG, QMO
     Route: 058
  3. COSENTYX [Suspect]
     Active Substance: SECUKINUMAB
     Dosage: 300 MG, OTHER,  WEEK 0, 1, 2, 3, 4 AND EVERY 4 WEEKS THEREAFTER
     Route: 058
     Dates: start: 20221101

REACTIONS (4)
  - Pruritus [Unknown]
  - Illness [Unknown]
  - Psoriasis [Unknown]
  - Drug ineffective [Unknown]
